FAERS Safety Report 16222085 (Version 6)
Quarter: 2019Q3

REPORT INFORMATION
  Report Type: Report from Study
  Country: ZA (occurrence: ZA)
  Receive Date: 20190422
  Receipt Date: 20190828
  Transmission Date: 20191004
  Serious: Yes (Life-Threatening)
  Sender: FDA-Public Use
  Company Number: ZA-SA-2019SA107098

PATIENT
  Age: 48 Year
  Sex: Female

DRUGS (6)
  1. OPTISULIN [INSULIN GLARGINE] [Suspect]
     Active Substance: INSULIN GLARGINE
     Dosage: 30 U, BID
     Route: 065
     Dates: start: 20190320
  2. INSULIN GLULISINE [Suspect]
     Active Substance: INSULIN GLULISINE
     Dosage: BS-16 UNITS | BL-16 UNITS | BB-16 UNITS | BB-15 UNITS, QID
     Route: 065
     Dates: start: 20190320
  3. INSULIN GLULISINE [Suspect]
     Active Substance: INSULIN GLULISINE
     Dosage: 10 U, TID
     Route: 065
     Dates: start: 20190320
  4. INSULIN GLULISINE [Suspect]
     Active Substance: INSULIN GLULISINE
     Dosage: 12 U, QD (AFTER SUPPER)
     Route: 065
  5. PREXUM [Concomitant]
     Active Substance: PERINDOPRIL ERBUMINE
     Dosage: 10 MG, QD (BEFORE BREAKFAST)
     Route: 065
     Dates: start: 20180101
  6. OPTISULIN [INSULIN GLARGINE] [Suspect]
     Active Substance: INSULIN GLARGINE
     Dosage: 20 U, HS
     Route: 065

REACTIONS (14)
  - Diarrhoea [Recovered/Resolved]
  - Somnolence [Not Recovered/Not Resolved]
  - Fatigue [Recovered/Resolved]
  - Dizziness [Recovered/Resolved]
  - Blood glucose increased [Recovered/Resolved]
  - Inappropriate schedule of product administration [Unknown]
  - Fatigue [Not Recovered/Not Resolved]
  - Feeling hot [Not Recovered/Not Resolved]
  - Neoplasm skin [Not Recovered/Not Resolved]
  - Constipation [Not Recovered/Not Resolved]
  - Dizziness [Unknown]
  - Chromaturia [Not Recovered/Not Resolved]
  - Headache [Unknown]
  - Glycosylated haemoglobin increased [Unknown]

NARRATIVE: CASE EVENT DATE: 20190320
